FAERS Safety Report 10388904 (Version 1)
Quarter: 2014Q1

REPORT INFORMATION
  Report Type: Spontaneous
  Country: US (occurrence: None)
  Receive Date: 20140306
  Receipt Date: 20140306
  Transmission Date: 20141002
  Serious: Yes (Hospitalization, Other)
  Sender: FDA-Public Use
  Company Number: 163-21880-13071120

PATIENT
  Age: 94 Year
  Sex: Female

DRUGS (1)
  1. REVLIMID (LENALIDOMIDE) (CAPSULES) [Suspect]
     Indication: MYELODYSPLASTIC SYNDROME
     Route: 048
     Dates: start: 2012

REACTIONS (5)
  - Cardiac failure congestive [None]
  - Pulmonary oedema [None]
  - Nausea [None]
  - Vomiting [None]
  - Malaise [None]
